FAERS Safety Report 6152186-9 (Version None)
Quarter: 2009Q2

REPORT INFORMATION
  Report Type: 
  Country: None (occurrence: None)
  Receive Date: 20090410
  Receipt Date: 20080409
  Transmission Date: 20091009
  Serious: No
  Sender: FDA-Public Use
  Company Number: US-ASTRAZENECA-2008UW07225

PATIENT
  Age: 58 Year
  Sex: Female
  Weight: 63.5 kg

DRUGS (3)
  1. TENORMIN [Suspect]
     Indication: MITRAL VALVE PROLAPSE
     Dosage: CURRENT DOSE 1/2 TO 3/4 OF A 25 MG TABLET TWICE DAILY
     Route: 048
     Dates: start: 20070101
  2. TENORMIN [Suspect]
     Route: 048
     Dates: end: 20070101
  3. ZANTAC [Concomitant]

REACTIONS (3)
  - BLOOD PRESSURE INCREASED [None]
  - INCORRECT DOSE ADMINISTERED [None]
  - PALPITATIONS [None]
